FAERS Safety Report 23810631 (Version 1)
Quarter: 2024Q2

REPORT INFORMATION
  Report Type: Spontaneous
  Country: MX (occurrence: MX)
  Receive Date: 20240502
  Receipt Date: 20240502
  Transmission Date: 20240716
  Serious: Yes (Other)
  Sender: FDA-Public Use
  Company Number: MX-ViiV Healthcare Limited-MX2024GSK054379

PATIENT

DRUGS (3)
  1. DOLUTEGRAVIR [Suspect]
     Active Substance: DOLUTEGRAVIR
     Indication: HIV infection
     Dosage: UNK, BID
     Dates: start: 202206
  2. EMTRICITABINE [Suspect]
     Active Substance: EMTRICITABINE
     Indication: HIV infection
     Dosage: UNK
     Dates: start: 202204
  3. TENOFOVIR ALAFENAMIDE [Suspect]
     Active Substance: TENOFOVIR ALAFENAMIDE
     Indication: HIV infection
     Dosage: UNK, QD
     Dates: start: 202204

REACTIONS (13)
  - Immune reconstitution inflammatory syndrome [Unknown]
  - Sarcoidosis [Unknown]
  - Pyrexia [Unknown]
  - Asthenia [Unknown]
  - Choroiditis [Unknown]
  - Hilar lymphadenopathy [Unknown]
  - Granulomatous pneumonitis [Unknown]
  - Granuloma [Unknown]
  - Intestinal perforation [Unknown]
  - Gastrointestinal oedema [Unknown]
  - Granulomatous lymphadenitis [Unknown]
  - Kaposi^s sarcoma [Recovered/Resolved]
  - Condition aggravated [Recovered/Resolved]

NARRATIVE: CASE EVENT DATE: 20221201
